FAERS Safety Report 9082006 (Version 1)
Quarter: 2013Q1

REPORT INFORMATION
  Report Type: Report from Study
  Country: US (occurrence: US)
  Receive Date: 20130130
  Receipt Date: 20130130
  Transmission Date: 20140127
  Serious: No
  Sender: FDA-Public Use
  Company Number: US-ABBOTT-12P-163-0979236-00

PATIENT
  Age: 40 Year
  Sex: Male

DRUGS (2)
  1. HUMIRA [Suspect]
     Dosage: LOADING DOSE
     Dates: start: 20120808, end: 20120808
  2. HUMIRA [Suspect]
     Dates: start: 20120810, end: 20120810

REACTIONS (3)
  - Malaise [Unknown]
  - Bone pain [Unknown]
  - Headache [Unknown]
